FAERS Safety Report 7580141-0 (Version None)
Quarter: 2011Q2

REPORT INFORMATION
  Report Type: 
  Country: None (occurrence: None)
  Receive Date: 20110629
  Receipt Date: 20110613
  Transmission Date: 20111010
  Serious: Yes (Hospitalization, Other)
  Sender: FDA-Public Use
  Company Number: US-BAYER-2010-008540

PATIENT
  Age: 54 Year
  Sex: Female
  Weight: 73.923 kg

DRUGS (5)
  1. NSAID'S [Concomitant]
  2. MULTI-VITAMINS [Concomitant]
  3. ANTICOAGULANTS [Concomitant]
     Dosage: UNK
     Dates: start: 20081228, end: 20090609
  4. PROTONIX [Concomitant]
  5. YAZ [Suspect]
     Indication: MENOPAUSAL SYMPTOMS
     Dosage: UNK
     Dates: start: 20080806, end: 20081208

REACTIONS (4)
  - PAIN [None]
  - PULMONARY EMBOLISM [None]
  - PALPITATIONS [None]
  - DEEP VEIN THROMBOSIS [None]
